FAERS Safety Report 8916021 (Version 1)
Quarter: 2012Q4

REPORT INFORMATION
  Report Type: 
  Country: US (occurrence: US)
  Receive Date: 20121119
  Receipt Date: 20121119
  Transmission Date: 20130627
  Serious: Yes (Other)
  Sender: FDA-Public Use
  Company Number: US-ASTRAZENECA-2010SE45002

PATIENT
  Age: 66 Year
  Sex: Female

DRUGS (6)
  1. PULMICORT RESPULES [Suspect]
     Indication: ASTHMA
     Dosage: 1 MG/ 2 MG, DAILY
     Route: 055
     Dates: start: 201211, end: 201211
  2. PULMICORT RESPULES [Suspect]
     Indication: ASTHMA
     Dosage: 2 MG/ 2 MG, DAILY
     Route: 055
     Dates: start: 201211
  3. SYMBICORT PMDI [Suspect]
     Indication: ASTHMA
     Route: 055
  4. TOPROL [Suspect]
     Route: 048
     Dates: start: 2000
  5. CRESTOR [Suspect]
     Route: 048
     Dates: start: 2010
  6. CRESTOR [Suspect]
     Route: 048

REACTIONS (6)
  - Transient ischaemic attack [Unknown]
  - Cerebrovascular accident [Unknown]
  - Macular degeneration [Unknown]
  - Throat irritation [Unknown]
  - Emotional disorder [Unknown]
  - Intentional drug misuse [Unknown]
